FAERS Safety Report 24440735 (Version 1)
Quarter: 2024Q4

REPORT INFORMATION
  Report Type: Spontaneous
  Country: US (occurrence: US)
  Receive Date: 20241016
  Receipt Date: 20241016
  Transmission Date: 20250114
  Serious: Yes (Other)
  Sender: AUROBINDO
  Company Number: US-AUROBINDO-AUR-APL-2024-049215

PATIENT
  Age: 47 Year
  Sex: Male

DRUGS (8)
  1. PREDNISOLONE [Suspect]
     Active Substance: PREDNISOLONE
     Indication: Hepatic steatosis
     Dosage: UNK
     Route: 065
  2. PREDNISOLONE [Suspect]
     Active Substance: PREDNISOLONE
     Indication: Hepatic cirrhosis
  3. PREDNISOLONE [Suspect]
     Active Substance: PREDNISOLONE
     Indication: Portal hypertension
  4. PREDNISOLONE [Suspect]
     Active Substance: PREDNISOLONE
     Indication: Splenomegaly
  5. SPIRONOLACTONE [Suspect]
     Active Substance: SPIRONOLACTONE
     Indication: Ascites
     Dosage: UNK
     Route: 065
  6. SPIRONOLACTONE [Suspect]
     Active Substance: SPIRONOLACTONE
     Indication: Oedema peripheral
  7. LASIX [Suspect]
     Active Substance: FUROSEMIDE
     Indication: Ascites
     Dosage: UNK
     Route: 065
  8. LASIX [Suspect]
     Active Substance: FUROSEMIDE
     Indication: Oedema peripheral

REACTIONS (2)
  - Therapy non-responder [Unknown]
  - Drug ineffective [Unknown]
